FAERS Safety Report 4519128-0 (Version None)
Quarter: 2004Q4

REPORT INFORMATION
  Report Type: 
  Country: None (occurrence: None)
  Receive Date: 20041206
  Receipt Date: 20041130
  Transmission Date: 20050328
  Serious: Yes (Death)
  Sender: FDA-Public Use
  Company Number: US-JNJFOC-20041200531

PATIENT
  Age: 44 Year
  Sex: Female

DRUGS (1)
  1. RISPERDAL [Suspect]
     Indication: UNEVALUABLE EVENT
     Route: 049
     Dates: end: 20041101

REACTIONS (1)
  - THROMBOTIC THROMBOCYTOPENIC PURPURA [None]
